FAERS Safety Report 16470596 (Version 1)
Quarter: 2019Q2

REPORT INFORMATION
  Report Type: Spontaneous
  Country: CN (occurrence: CN)
  Receive Date: 20190624
  Receipt Date: 20190624
  Transmission Date: 20190711
  Serious: Yes (Other)
  Sender: FDA-Public Use
  Company Number: CN-GLAXOSMITHKLINE-CN2019APC109795

PATIENT

DRUGS (4)
  1. CEFAZOLINE INJECTION [Suspect]
     Active Substance: CEFAZOLIN
     Indication: ADENOMYOSIS
     Dosage: 100 MG, TID
     Route: 042
     Dates: start: 20190522, end: 20190523
  2. CEFUROXIME SODIUM. [Suspect]
     Active Substance: CEFUROXIME SODIUM
     Indication: ADENOMYOSIS
     Dosage: 0.75 G, TID
     Route: 042
     Dates: start: 20190522, end: 20190522
  3. METRONIDAZOLE. [Concomitant]
     Active Substance: METRONIDAZOLE
     Indication: PROPHYLAXIS
     Dosage: UNK
     Route: 042
  4. SODIUM CHLORIDE. [Concomitant]
     Active Substance: SODIUM CHLORIDE
     Indication: ADENOMYOSIS
     Dosage: 100 ML, TID
     Route: 042
     Dates: start: 20190520, end: 20190523

REACTIONS (6)
  - White blood cell count increased [Recovered/Resolved]
  - Neutrophil count increased [Recovered/Resolved]
  - Abdominal pain upper [Recovered/Resolved]
  - Abdominal tenderness [Recovered/Resolved]
  - Pelvic inflammatory disease [Recovered/Resolved]
  - Pruritus [Recovered/Resolved]

NARRATIVE: CASE EVENT DATE: 20190522
